FAERS Safety Report 7007705-7 (Version None)
Quarter: 2010Q3

REPORT INFORMATION
  Report Type: 
  Country: None (occurrence: None)
  Receive Date: 20100920
  Receipt Date: 20100910
  Transmission Date: 20110219
  Serious: Yes (Other)
  Sender: FDA-Public Use
  Company Number: 2010S1000788

PATIENT
  Age: 57 Year
  Sex: Male

DRUGS (9)
  1. LIVALO [Suspect]
     Indication: DYSLIPIDAEMIA
     Dosage: 1 MG; 1X; PO
     Route: 048
     Dates: start: 20100731, end: 20100830
  2. BEZAFIBRATE (BEZAFIBRATE) [Suspect]
     Indication: HYPERLIPIDAEMIA
     Dosage: 200 MG; BID; PO
     Route: 048
     Dates: start: 20090801, end: 20100830
  3. ATELEC [Concomitant]
  4. GASLON N [Concomitant]
  5. TELMISARTAN [Concomitant]
  6. LIMAS [Concomitant]
  7. HIRNAMIN /00038601/ [Concomitant]
  8. ALTAT [Concomitant]
  9. AROTINOLOL HYDROCHLORIDE [Concomitant]

REACTIONS (2)
  - BLOOD CREATINE PHOSPHOKINASE INCREASED [None]
  - RENAL FAILURE ACUTE [None]
